FAERS Safety Report 25592505 (Version 1)
Quarter: 2025Q3

REPORT INFORMATION
  Report Type: Spontaneous
  Country: CN (occurrence: CN)
  Receive Date: 20250722
  Receipt Date: 20250722
  Transmission Date: 20251020
  Serious: Yes (Hospitalization)
  Sender: MYLAN
  Company Number: CN-MYLANLABS-2025M1061009

PATIENT
  Age: 30 Year
  Sex: Male

DRUGS (8)
  1. PREGABALIN [Suspect]
     Active Substance: PREGABALIN
     Indication: Sleep disorder
  2. PREGABALIN [Suspect]
     Active Substance: PREGABALIN
     Indication: Affective disorder
  3. PREGABALIN [Suspect]
     Active Substance: PREGABALIN
     Indication: Dysphoria
  4. PREGABALIN [Suspect]
     Active Substance: PREGABALIN
     Indication: Anxiety
  5. PREGABALIN [Suspect]
     Active Substance: PREGABALIN
     Indication: Sleep disorder
     Dosage: 1800 MILLIGRAM, QD (1800 MG (150 MG PER CAPSULE ? 12 CAPSULES) FOR ONE WEEK)
     Dates: start: 202403
  6. PREGABALIN [Suspect]
     Active Substance: PREGABALIN
     Indication: Affective disorder
     Dosage: 1800 MILLIGRAM, QOD (1800 MG (150 MG PER CAPSULE ? 12 CAPSULES), AND TOOK THE MEDICATION ONCE EVERY 2 DAYS)
     Dates: start: 202404, end: 202505
  7. PREGABALIN [Suspect]
     Active Substance: PREGABALIN
     Indication: Dysphoria
  8. PREGABALIN [Suspect]
     Active Substance: PREGABALIN
     Indication: Anxiety

REACTIONS (22)
  - Dysphoria [Recovering/Resolving]
  - Poor quality sleep [Recovering/Resolving]
  - Palpitations [Recovering/Resolving]
  - Drug tolerance [Unknown]
  - Cold sweat [Recovering/Resolving]
  - Dizziness [Recovering/Resolving]
  - Restlessness [Recovering/Resolving]
  - Insomnia [Recovering/Resolving]
  - Withdrawal syndrome [Recovering/Resolving]
  - Intentional overdose [Unknown]
  - Drug abuse [Unknown]
  - Drug dependence [Unknown]
  - Eating disorder [Unknown]
  - Emotional distress [Recovered/Resolved]
  - Anosognosia [Unknown]
  - Hepatic function abnormal [Recovering/Resolving]
  - Headache [Unknown]
  - Decreased appetite [Unknown]
  - Somnolence [Recovering/Resolving]
  - Toxicity to various agents [Unknown]
  - Fatigue [Unknown]
  - Nausea [Unknown]
